FAERS Safety Report 24069968 (Version 1)
Quarter: 2024Q3

REPORT INFORMATION
  Report Type: Spontaneous
  Country: US (occurrence: US)
  Receive Date: 20240710
  Receipt Date: 20240710
  Transmission Date: 20241017
  Serious: No
  Sender: ROCHE
  Company Number: US-ROCHE-3511202

PATIENT
  Sex: Male

DRUGS (1)
  1. ALECENSA [Suspect]
     Active Substance: ALECTINIB HYDROCHLORIDE
     Indication: Ill-defined disorder
     Route: 048
     Dates: start: 202401

REACTIONS (4)
  - Off label use [Unknown]
  - Joint swelling [Unknown]
  - Heart rate decreased [Unknown]
  - Fatigue [Unknown]
